FAERS Safety Report 24327954 (Version 1)
Quarter: 2024Q3

REPORT INFORMATION
  Report Type: Spontaneous
  Country: CN (occurrence: CN)
  Receive Date: 20240917
  Receipt Date: 20240917
  Transmission Date: 20241017
  Serious: Yes (Other)
  Sender: PFIZER
  Company Number: CN-PFIZER INC-PV202400120940

PATIENT
  Age: 7 Year
  Sex: Male
  Weight: 20 kg

DRUGS (1)
  1. AZITHROMYCIN [Suspect]
     Active Substance: AZITHROMYCIN
     Indication: Respiratory tract infection
     Dosage: 0.2 G, 1X/DAY
     Route: 048
     Dates: start: 20240827, end: 20240829

REACTIONS (5)
  - Cardiac discomfort [Recovering/Resolving]
  - Palpitations [Recovering/Resolving]
  - Dysstasia [Recovering/Resolving]
  - Asthma [Recovering/Resolving]
  - Abdominal discomfort [Recovering/Resolving]

NARRATIVE: CASE EVENT DATE: 20240830
